FAERS Safety Report 4328781-6 (Version None)
Quarter: 2004Q1

REPORT INFORMATION
  Report Type: 
  Country: None (occurrence: None)
  Receive Date: 20040331
  Receipt Date: 20040318
  Transmission Date: 20041129
  Serious: Yes (Hospitalization)
  Sender: FDA-Public Use
  Company Number: 2004019266

PATIENT
  Sex: Female
  Weight: 75.7507 kg

DRUGS (1)
  1. DOXIDAN (CASANTHRANOL, DOCUSATE SODIUM) [Suspect]
     Indication: CONSTIPATION
     Dosage: 20 LIQUIGELS, ORAL
     Route: 048
     Dates: start: 20040301, end: 20040301

REACTIONS (3)
  - ABDOMINAL PAIN [None]
  - MEDICATION ERROR [None]
  - VOMITING [None]
